FAERS Safety Report 13853315 (Version 1)
Quarter: 2017Q3

REPORT INFORMATION
  Report Type: Spontaneous
  Country: US (occurrence: US)
  Receive Date: 20170809
  Receipt Date: 20170809
  Transmission Date: 20171127
  Serious: Yes (Disabling)
  Sender: FDA-Public Use
  Company Number: None

PATIENT
  Age: 76 Year
  Sex: Female
  Weight: 59.85 kg

DRUGS (14)
  1. FLUCTOSONE [Concomitant]
  2. ROCALTROL [Concomitant]
     Active Substance: CALCITRIOL
  3. PREDNISONE. [Concomitant]
     Active Substance: PREDNISONE
  4. VITAMIN B [Concomitant]
     Active Substance: VITAMIN B
  5. VITAMIN C [Concomitant]
     Active Substance: ASCORBIC ACID
  6. PANTOPRAZOLE [Concomitant]
     Active Substance: PANTOPRAZOLE
  7. HERCEPTIN [Concomitant]
     Active Substance: TRASTUZUMAB
  8. ONDANSETRON [Concomitant]
     Active Substance: ONDANSETRON
  9. SYNTHROID [Concomitant]
     Active Substance: LEVOTHYROXINE SODIUM
  10. PERJETA [Suspect]
     Active Substance: PERTUZUMAB
     Indication: BREAST CANCER
     Dosage: QUANTITY:1 420MG IN 250ML;OTHER FREQUENCY:Q 6 WKS;?
     Route: 042
     Dates: start: 20141030, end: 20170725
  11. CALCIUM [Concomitant]
     Active Substance: CALCIUM
  12. VITAMIN D [Concomitant]
     Active Substance: CHOLECALCIFEROL
  13. ADVIL [Concomitant]
     Active Substance: IBUPROFEN
  14. FERROUS SULFATE. [Concomitant]
     Active Substance: FERROUS SULFATE

REACTIONS (6)
  - Paraesthesia [None]
  - Vomiting [None]
  - Pain [None]
  - Nausea [None]
  - Feeling hot [None]
  - Grip strength decreased [None]

NARRATIVE: CASE EVENT DATE: 20150401
